FAERS Safety Report 6304507-1 (Version None)
Quarter: 2009Q3

REPORT INFORMATION
  Report Type: 
  Country: None (occurrence: None)
  Receive Date: 20090811
  Receipt Date: 20090803
  Transmission Date: 20100115
  Serious: Yes (Hospitalization)
  Sender: FDA-Public Use
  Company Number: PHHO2009IT09601

PATIENT
  Sex: Male
  Weight: 62 kg

DRUGS (5)
  1. RAD 666 RAD+TAB [Suspect]
     Indication: LIVER TRANSPLANT
     Dosage: OPEN LABEL
     Route: 048
     Dates: start: 20090527, end: 20090609
  2. RAD 666 RAD+TAB [Suspect]
     Dosage: NO TREATMENT
     Dates: start: 20090610, end: 20090621
  3. RAD 666 RAD+TAB [Suspect]
     Dosage: OPEN LABEL
     Route: 048
     Dates: start: 20090622, end: 20090731
  4. TACROLIMUS COMP-TAC+ [Suspect]
     Indication: LIVER TRANSPLANT
     Dosage: OPEN LABEL
     Route: 048
     Dates: start: 20090429, end: 20090731
  5. STEROIDS [Concomitant]
     Indication: LIVER TRANSPLANT
     Dosage: OPEN LABEL
     Route: 048
     Dates: start: 20090429

REACTIONS (2)
  - DEEP VEIN THROMBOSIS [None]
  - PULMONARY EMBOLISM [None]
